FAERS Safety Report 4697703-0 (Version None)
Quarter: 2005Q2

REPORT INFORMATION
  Report Type: 
  Country: None (occurrence: None)
  Receive Date: 20050619
  Receipt Date: 20050619
  Transmission Date: 20051028
  Serious: Yes (Life-Threatening)
  Sender: FDA-Public Use
  Company Number: None

PATIENT
  Sex: Female

DRUGS (1)
  1. DEPAKENE [Suspect]
     Indication: CONVULSION
     Dosage: 250 MG 3 Q AM  2 Q NOON  3 Q HS

REACTIONS (3)
  - CONVULSION [None]
  - DRUG LEVEL CHANGED [None]
  - THERAPEUTIC RESPONSE UNEXPECTED WITH DRUG SUBSTITUTION [None]
